FAERS Safety Report 7472161-1 (Version None)
Quarter: 2011Q2

REPORT INFORMATION
  Report Type: 
  Country: None (occurrence: None)
  Receive Date: 20110511
  Receipt Date: 20110203
  Transmission Date: 20111010
  Serious: No
  Sender: FDA-Public Use
  Company Number: A0912331A

PATIENT
  Age: 60 Year
  Sex: Female

DRUGS (1)
  1. TYKERB [Suspect]
     Dosage: 1250MG PER DAY
     Route: 048

REACTIONS (8)
  - VOMITING [None]
  - ABDOMINAL PAIN UPPER [None]
  - INFLUENZA [None]
  - DYSPEPSIA [None]
  - DIARRHOEA [None]
  - PYREXIA [None]
  - ABDOMINAL DISCOMFORT [None]
  - MUSCLE SPASMS [None]
